FAERS Safety Report 6649091-8 (Version None)
Quarter: 2010Q1

REPORT INFORMATION
  Report Type: 
  Country: None (occurrence: None)
  Receive Date: 20100319
  Receipt Date: 20100308
  Transmission Date: 20100710
  Serious: Yes (Other)
  Sender: FDA-Public Use
  Company Number: B0640618A

PATIENT
  Age: 45 Year
  Sex: Female

DRUGS (6)
  1. AMOXICILLIN/CLAVULANATE POTASSIUM [Suspect]
     Indication: DENTAL CARE
  2. CO-TRIMOXAZOLE  (SULFAMETHOXAZOLE/TRIMETHO)  (GENERIC) [Suspect]
     Indication: URINARY TRACT INFECTION
  3. IODIXANOL (FORMULATION UNKNOWN) (IODIXANOL) [Suspect]
     Indication: ARTERIOGRAM CORONARY
  4. FRUSMIDE [Concomitant]
  5. ATORVASTATIN CALCIUM [Concomitant]
  6. LISINOPRIL [Concomitant]

REACTIONS (1)
  - DRUG HYPERSENSITIVITY [None]
